FAERS Safety Report 5652043-8 (Version None)
Quarter: 2008Q1

REPORT INFORMATION
  Report Type: 
  Country: None (occurrence: None)
  Receive Date: 20080131
  Receipt Date: 20071119
  Transmission Date: 20080703
  Serious: No
  Sender: FDA-Public Use
  Company Number: US200711004740

PATIENT
  Age: 68 Year
  Sex: Male

DRUGS (4)
  1. BYETTA [Suspect]
     Indication: DIABETES MELLITUS
     Dosage: 10 UG
     Dates: start: 20060201
  2. HUMALOG MIX /01500801/ (INSULIN LISPRO, INSULIN LISPRO PROTAMINE SUSPE [Concomitant]
  3. ZOLOFT [Concomitant]
  4. METFORMIN HCL [Concomitant]

REACTIONS (2)
  - HERPES ZOSTER [None]
  - RASH [None]
